FAERS Safety Report 9215313 (Version 3)
Quarter: 2014Q1

REPORT INFORMATION
  Report Type: Report from Study
  Country: US (occurrence: US)
  Receive Date: 20130405
  Receipt Date: 20140210
  Transmission Date: 20141002
  Serious: Yes (Hospitalization)
  Sender: FDA-Public Use
  Company Number: US-SANOFI-AVENTIS-2013SA030006

PATIENT
  Age: 56 Year
  Sex: Male

DRUGS (3)
  1. AUBAGIO [Suspect]
     Indication: MULTIPLE SCLEROSIS
     Route: 048
     Dates: start: 20130221, end: 20140123
  2. CORTICOSTEROIDS [Suspect]
     Indication: HEADACHE
  3. HYDROCHLOROTHIAZIDE [Suspect]

REACTIONS (2)
  - Pancreatitis [Recovered/Resolved]
  - Cellulitis [Recovered/Resolved]
